FAERS Safety Report 7256008-4 (Version None)
Quarter: 2011Q1

REPORT INFORMATION
  Report Type: 
  Country: None (occurrence: None)
  Receive Date: 20110129
  Receipt Date: 20100520
  Transmission Date: 20110831
  Serious: No
  Sender: FDA-Public Use
  Company Number: US-ABBOTT-10P-163-0646155-00

PATIENT
  Age: 58 Year
  Sex: Male

DRUGS (8)
  1. HUMIRA [Suspect]
     Indication: RHEUMATOID ARTHRITIS
     Dates: start: 20100430
  2. HYZAAR [Concomitant]
     Indication: HYPERTENSION
     Route: 048
  3. FELODIPINE [Concomitant]
     Indication: HYPERTENSION
  4. DICLOFENAC SODIUM [Concomitant]
     Indication: PRODUCT USED FOR UNKNOWN INDICATION
  5. HYDROXYCHLOROQUINE [Concomitant]
     Indication: RHEUMATOID ARTHRITIS
  6. ARAVA [Concomitant]
     Indication: RHEUMATOID ARTHRITIS
     Dosage: 20 MG TABS 1 MG TABS
  7. ATENOLOL [Concomitant]
     Indication: HYPERTENSION
     Route: 048
  8. LIPITOR [Concomitant]
     Indication: BLOOD CHOLESTEROL INCREASED

REACTIONS (5)
  - TREMOR [None]
  - HYPOTENSION [None]
  - FEELING ABNORMAL [None]
  - DIZZINESS [None]
  - HYPERHIDROSIS [None]
